FAERS Safety Report 25490678 (Version 2)
Quarter: 2025Q2

REPORT INFORMATION
  Report Type: Report from Study
  Country: JP (occurrence: None)
  Receive Date: 20250627
  Receipt Date: 20250630
  Transmission Date: 20250716
  Serious: Yes (Death)
  Sender: ENCUBE ETHICALS
  Company Number: JP-Encube-001992

PATIENT

DRUGS (1)
  1. GENTAMICIN SULFATE [Suspect]
     Active Substance: GENTAMICIN SULFATE
     Indication: Infection

REACTIONS (3)
  - Cardiac failure [Fatal]
  - Renal failure [Fatal]
  - Off label use [Unknown]
